FAERS Safety Report 5127573-8 (Version None)
Quarter: 2006Q4

REPORT INFORMATION
  Report Type: 
  Country: None (occurrence: None)
  Receive Date: 20061011
  Receipt Date: 20060925
  Transmission Date: 20070319
  Serious: Yes (Hospitalization)
  Sender: FDA-Public Use
  Company Number: 2006EU002659

PATIENT
  Age: 62 Year
  Sex: Male

DRUGS (2)
  1. PROTOPIC [Suspect]
     Indication: ECZEMA
     Dosage: 0.1%, UNKNOWN/D, TOPICAL
     Route: 061
     Dates: start: 20040101, end: 20060601
  2. CETRABEN(LIGHT LIQUID PARAFFIN, WHITE SOFT PARAFFIN) [Concomitant]

REACTIONS (1)
  - T-CELL LYMPHOMA [None]
